FAERS Safety Report 8840007 (Version 1)
Quarter: 2012Q4

REPORT INFORMATION
  Report Type: 
  Country: US (occurrence: US)
  Receive Date: 20121015
  Receipt Date: 20121015
  Transmission Date: 20130627
  Serious: No
  Sender: FDA-Public Use
  Company Number: US-PFIZER INC-2012254674

PATIENT
  Age: 29 Year
  Sex: Female
  Weight: 58.96 kg

DRUGS (2)
  1. NICOTROL INHALER [Suspect]
     Indication: SMOKING CESSATION THERAPY
     Dosage: UNK
     Dates: start: 20120921
  2. PROAIR [Concomitant]
     Indication: DYSPNOEA
     Dosage: UNK, 2x/day

REACTIONS (3)
  - Therapeutic response unexpected [Unknown]
  - Energy increased [Unknown]
  - Weight decreased [Unknown]
